FAERS Safety Report 10277422 (Version 1)
Quarter: 2014Q3

REPORT INFORMATION
  Report Type: Spontaneous
  Country: US (occurrence: US)
  Receive Date: 20140703
  Receipt Date: 20140703
  Transmission Date: 20150326
  Serious: Yes (Other)
  Sender: FDA-Public Use
  Company Number: US-ABBVIE-14P-163-1252561-00

PATIENT
  Sex: Female
  Weight: 10.44 kg

DRUGS (2)
  1. HUMIRA [Suspect]
     Active Substance: ADALIMUMAB
     Route: 063
  2. HUMIRA [Suspect]
     Active Substance: ADALIMUMAB
     Indication: MATERNAL EXPOSURE TIMING UNSPECIFIED
     Route: 064

REACTIONS (14)
  - Failure to thrive [Unknown]
  - Sleep apnoea syndrome [Recovered/Resolved]
  - Snoring [Unknown]
  - Growth retardation [Recovering/Resolving]
  - Hypophagia [Recovered/Resolved]
  - Middle insomnia [Unknown]
  - Poor quality sleep [Recovering/Resolving]
  - Exposure during breast feeding [Unknown]
  - Poor weight gain neonatal [Unknown]
  - Tonsillar hypertrophy [Unknown]
  - Somnolence [Unknown]
  - Hunger [Unknown]
  - Foetal exposure during pregnancy [Unknown]
  - Eating disorder [Unknown]

NARRATIVE: CASE EVENT DATE: 201311
